FAERS Safety Report 4878236-5 (Version None)
Quarter: 2006Q1

REPORT INFORMATION
  Report Type: 
  Country: None (occurrence: None)
  Receive Date: 20060111
  Receipt Date: 20051220
  Transmission Date: 20060701
  Serious: Yes (Hospitalization, Disabling)
  Sender: FDA-Public Use
  Company Number: US-MERCK-0512USA03326

PATIENT
  Age: 58 Year
  Sex: Male
  Weight: 114 kg

DRUGS (3)
  1. VIOXX [Suspect]
     Indication: BACK PAIN
     Route: 048
     Dates: start: 19990101, end: 20000101
  2. INSULIN [Concomitant]
     Indication: DIABETES MELLITUS
     Route: 065
  3. [THERAPY UNSPECIFIED] [Concomitant]
     Indication: HYPERTENSION
     Route: 065

REACTIONS (1)
  - CEREBROVASCULAR ACCIDENT [None]
